FAERS Safety Report 4453879-1 (Version None)
Quarter: 2004Q3

REPORT INFORMATION
  Report Type: 
  Country: None (occurrence: None)
  Receive Date: 20040902
  Receipt Date: 20040624
  Transmission Date: 20050211
  Serious: No
  Sender: FDA-Public Use
  Company Number: 200418538BWH

PATIENT
  Age: 82 Year
  Sex: Male
  Weight: 73.9363 kg

DRUGS (5)
  1. LEVITRA [Suspect]
     Indication: ERECTILE DYSFUNCTION
     Dosage: 20 MG, INCE, ORAL
     Route: 048
     Dates: start: 20040617
  2. ZOCOR [Concomitant]
  3. MONOPRIL [Concomitant]
  4. BEXTRA [Concomitant]
  5. ATENOLOL [Concomitant]

REACTIONS (1)
  - ERECTILE DYSFUNCTION [None]
